FAERS Safety Report 23536041 (Version 2)
Quarter: 2024Q1

REPORT INFORMATION
  Report Type: Spontaneous
  Country: US (occurrence: US)
  Receive Date: 20240219
  Receipt Date: 20240324
  Transmission Date: 20240410
  Serious: No
  Sender: FDA-Public Use
  Company Number: US-GLAXOSMITHKLINE-US2024AMR018484

PATIENT
  Sex: Female

DRUGS (1)
  1. ZEJULA [Suspect]
     Active Substance: NIRAPARIB
     Indication: Malignant peritoneal neoplasm
     Dosage: 200 MG, QD

REACTIONS (5)
  - Blood pressure increased [Unknown]
  - Headache [Recovering/Resolving]
  - Abdominal distension [Unknown]
  - Laboratory test abnormal [Unknown]
  - Hypertension [Unknown]
